FAERS Safety Report 17885546 (Version 2)
Quarter: 2022Q3

REPORT INFORMATION
  Report Type: Spontaneous
  Country: GB (occurrence: GB)
  Receive Date: 20200611
  Receipt Date: 20220922
  Transmission Date: 20221027
  Serious: Yes (Hospitalization)
  Sender: FDA-Public Use
  Company Number: GB-NOVARTISPH-NVSC2020GB149819

PATIENT
  Age: 78 Year
  Sex: Male
  Weight: 78.6 kg

DRUGS (21)
  1. BORTEZOMIB [Suspect]
     Active Substance: BORTEZOMIB
     Indication: Plasma cell myeloma
     Dosage: 2.5 MG/M2, CYCLIC
     Route: 058
     Dates: start: 20170428, end: 20170814
  2. BORTEZOMIB [Suspect]
     Active Substance: BORTEZOMIB
     Dosage: 2 MG/M2
     Route: 058
     Dates: start: 20170821, end: 20200131
  3. BORTEZOMIB [Suspect]
     Active Substance: BORTEZOMIB
     Dosage: 1.95 MG/M2
     Route: 058
     Dates: start: 20200207, end: 20200228
  4. DEXAMETHASONE [Suspect]
     Active Substance: DEXAMETHASONE
     Indication: Plasma cell myeloma
     Dosage: 20 MG
     Route: 048
     Dates: start: 20170428, end: 20190119
  5. DEXAMETHASONE [Suspect]
     Active Substance: DEXAMETHASONE
     Dosage: 12 MG
     Route: 048
     Dates: start: 20190222, end: 20191130
  6. DEXAMETHASONE [Suspect]
     Active Substance: DEXAMETHASONE
     Dosage: 8 MG
     Route: 048
     Dates: start: 20191213, end: 20200229
  7. DEXAMETHASONE [Suspect]
     Active Substance: DEXAMETHASONE
     Dosage: 8 MG (C9+, DAY 1, 2, 8, 9, 15, 16, 22 AND 23 OF 35D CYCLE (8 MG))
     Route: 048
     Dates: start: 20200327
  8. VENETOCLAX [Suspect]
     Active Substance: VENETOCLAX
     Indication: Plasma cell myeloma
     Dosage: 800 MG
     Route: 048
     Dates: start: 20170428, end: 20171011
  9. VENETOCLAX [Suspect]
     Active Substance: VENETOCLAX
     Dosage: 600 MG
     Route: 048
     Dates: start: 20171012, end: 20200305
  10. VENETOCLAX [Suspect]
     Active Substance: VENETOCLAX
     Dosage: 400 MG
     Route: 048
     Dates: start: 20200327
  11. ZOMETA [Concomitant]
     Active Substance: ZOLEDRONIC ACID
     Indication: Plasma cell myeloma
     Dosage: 3 MG
     Route: 065
     Dates: start: 20170619
  12. LANSOPRAZOLE [Concomitant]
     Active Substance: LANSOPRAZOLE
     Indication: Gastrooesophageal reflux disease
     Dosage: 30 MG, QD
     Route: 048
     Dates: start: 20171115
  13. COTRIMOXAZOLE [Concomitant]
     Active Substance: SULFAMETHOXAZOLE\TRIMETHOPRIM
     Indication: Antibiotic prophylaxis
     Dosage: 2880 MG, QW
     Route: 048
     Dates: start: 20170428, end: 20190328
  14. COTRIMOXAZOLE [Concomitant]
     Active Substance: SULFAMETHOXAZOLE\TRIMETHOPRIM
     Dosage: 960 MG
     Route: 048
     Dates: start: 20170428, end: 20190328
  15. COTRIMOXAZOLE [Concomitant]
     Active Substance: SULFAMETHOXAZOLE\TRIMETHOPRIM
     Dosage: 2880 MG, QW
     Route: 048
     Dates: start: 20190329
  16. COTRIMOXAZOLE [Concomitant]
     Active Substance: SULFAMETHOXAZOLE\TRIMETHOPRIM
     Dosage: 960 MG (MON, WED, FRI)
     Route: 048
     Dates: start: 20190329
  17. ALLOPURINOL [Concomitant]
     Active Substance: ALLOPURINOL
     Indication: Tumour lysis syndrome
     Dosage: 300 MG, QD
     Route: 048
     Dates: start: 20170428, end: 20170518
  18. DOXYCYCLINE [Concomitant]
     Active Substance: DOXYCYCLINE
     Indication: Antibiotic prophylaxis
     Dosage: 400 MG, QD
     Route: 048
     Dates: start: 20190329, end: 20200220
  19. ACYCLOVIR [Concomitant]
     Active Substance: ACYCLOVIR
     Indication: Prophylaxis
     Dosage: 600 MG, QD
     Route: 048
     Dates: start: 20170428
  20. ACYCLOVIR [Concomitant]
     Active Substance: ACYCLOVIR
     Dosage: 200 MG
     Route: 048
     Dates: start: 20170428
  21. PNEUMOCOCCAL VACCINE POLYVALENT NOS [Concomitant]
     Active Substance: PNEUMOCOCCAL VACCINE POLYVALENT
     Indication: Prophylaxis
     Dosage: UNK
     Route: 065
     Dates: start: 20200224, end: 20200224

REACTIONS (2)
  - Influenza [Recovered/Resolved]
  - Upper respiratory tract infection [Recovered/Resolved]

NARRATIVE: CASE EVENT DATE: 20200306
